FAERS Safety Report 13416571 (Version 1)
Quarter: 2017Q2

REPORT INFORMATION
  Report Type: Spontaneous
  Country: US (occurrence: US)
  Receive Date: 20170407
  Receipt Date: 20170407
  Transmission Date: 20170830
  Serious: Yes (Hospitalization)
  Sender: FDA-Public Use
  Company Number: US-B.I. PHARMACEUTICALS,INC./RIDGEFIELD-2017-BI-019371

PATIENT
  Age: 55 Year
  Sex: Female

DRUGS (7)
  1. VERAPAMIL [Concomitant]
     Active Substance: VERAPAMIL HYDROCHLORIDE
     Indication: HYPERTENSION
     Dosage: 1 TIME PER DAY;  FORM STRENGTH: 120 MG; FORMULATION: TABLET
     Route: 048
     Dates: start: 2015
  2. WARFARIN [Concomitant]
     Active Substance: WARFARIN
     Indication: PROPHYLAXIS
  3. WARFARIN [Concomitant]
     Active Substance: WARFARIN
     Indication: THROMBOSIS
     Dosage: 1 1/2 TABLET PER DAY;  FORMULATION: TABLET;
     Route: 048
     Dates: start: 2015
  4. METHOTREXATE. [Concomitant]
     Active Substance: METHOTREXATE
     Indication: RHEUMATOID FACTOR INCREASED
     Dosage: 6 TIMES PER DAY;  FORM STRENGTH: 10 MG; FORMULATION: TABLET
     Route: 048
     Dates: start: 2015
  5. SPIRIVA [Suspect]
     Active Substance: TIOTROPIUM BROMIDE MONOHYDRATE
     Indication: CHRONIC OBSTRUCTIVE PULMONARY DISEASE
     Dosage: 1 CAPSULE PER DAY;  FORM STRENGTH: 18 MCG; FORMULATION: CAPSULE? ADMINISTRATION CORRECT? YES ?ACTION
     Route: 055
     Dates: start: 201604
  6. COLCHICINE. [Concomitant]
     Active Substance: COLCHICINE
     Indication: FLUID RETENTION
     Dosage: 1 TABLET PER DAY;  FORM STRENGTH: 0.6 MG; FORMULATION: TABLET
     Route: 048
     Dates: start: 2015
  7. QVAR [Concomitant]
     Active Substance: BECLOMETHASONE DIPROPIONATE
     Indication: CHRONIC OBSTRUCTIVE PULMONARY DISEASE
     Dosage: 2 PUFFS ONE TIME PER DAY;  FORMULATION: INHALATION AEROSOL;
     Route: 055
     Dates: start: 2015

REACTIONS (1)
  - Pneumonia [Not Recovered/Not Resolved]

NARRATIVE: CASE EVENT DATE: 20170309
